FAERS Safety Report 9530328 (Version 1)
Quarter: 2013Q3

REPORT INFORMATION
  Report Type: Spontaneous
  Country: TN (occurrence: TN)
  Receive Date: 20130917
  Receipt Date: 20130917
  Transmission Date: 20140515
  Serious: Yes (Hospitalization)
  Sender: FDA-Public Use
  Company Number: TN-009507513-1309TUN005048

PATIENT
  Age: 65 Year
  Sex: Male

DRUGS (4)
  1. VIRAFERONPEG [Suspect]
     Indication: HEPATITIS C
     Dosage: 120 MICROGRAM, ONCE PER WEEK
     Route: 058
     Dates: start: 20130802, end: 20130902
  2. REBETOL [Suspect]
     Indication: HEPATITIS C
     Dosage: 200MG 5 PILLS PER DAY, DAILY DOSE: 1000MG
     Route: 048
     Dates: start: 20130802, end: 20130902
  3. LOPRIL [Concomitant]
     Indication: HYPERTENSION
  4. ADALATE [Concomitant]
     Indication: HYPERTENSION

REACTIONS (1)
  - Pneumonia [Unknown]
